FAERS Safety Report 10383643 (Version 1)
Quarter: 2014Q3

REPORT INFORMATION
  Report Type: Spontaneous
  Country: ES (occurrence: None)
  Receive Date: 20140811
  Receipt Date: 20140811
  Transmission Date: 20150326
  Serious: Yes (Other)
  Sender: FDA-Public Use
  Company Number: AUR-APL-2014-08496

PATIENT
  Age: 19 Year
  Sex: Male

DRUGS (1)
  1. RISPERIDONE (RISPERIDONE) UNKNOWN, UNKNOWN [Suspect]
     Active Substance: RISPERIDONE
     Indication: SCHIZOPHRENIA, PARANOID TYPE

REACTIONS (4)
  - Weight decreased [None]
  - Asthenia [None]
  - Hepatotoxicity [None]
  - Drug-induced liver injury [None]
